FAERS Safety Report 22319255 (Version 2)
Quarter: 2023Q2

REPORT INFORMATION
  Report Type: Report from Study
  Country: DK (occurrence: DK)
  Receive Date: 20230515
  Receipt Date: 20230529
  Transmission Date: 20230721
  Serious: Yes (Hospitalization)
  Sender: FDA-Public Use
  Company Number: DK-JNJFOC-20230356223

PATIENT
  Age: 46 Year
  Sex: Male
  Weight: 97.8 kg

DRUGS (12)
  1. BORTEZOMIB [Suspect]
     Active Substance: BORTEZOMIB
     Indication: Plasma cell myeloma
     Dosage: 0.89 MILLILITER
     Route: 058
     Dates: start: 20210305, end: 20230314
  2. DEXAMETHASONE [Suspect]
     Active Substance: DEXAMETHASONE
     Indication: Plasma cell myeloma
     Dosage: 12 MILLIGRAM
     Route: 048
     Dates: start: 20210305, end: 20230321
  3. POMALIDOMIDE [Suspect]
     Active Substance: POMALIDOMIDE
     Indication: Plasma cell myeloma
     Dosage: 4 MILLIGRAM
     Route: 048
     Dates: start: 20210305, end: 20230321
  4. ACYCLOVIR [Concomitant]
     Active Substance: ACYCLOVIR
     Indication: Antiviral prophylaxis
     Dosage: 400 MILLIGRAM, BID
     Route: 048
     Dates: start: 20190110
  5. IBUPROFEN [Concomitant]
     Active Substance: IBUPROFEN
     Indication: Pain in jaw
     Dosage: 400 MILLIGRAM
     Route: 048
     Dates: start: 20210216
  6. PANTOPRAZOLE [Concomitant]
     Active Substance: PANTOPRAZOLE
     Indication: Prophylaxis
     Dosage: 20 MILLIGRAM, QD
     Route: 048
     Dates: start: 20210305
  7. SILDENAFIL [Concomitant]
     Active Substance: SILDENAFIL
     Indication: Erectile dysfunction
     Dosage: 50 MILLIGRAM
     Route: 048
     Dates: start: 20210621
  8. INNOHEP [Concomitant]
     Active Substance: TINZAPARIN SODIUM
     Indication: Prophylaxis
     Dosage: 4500 INTERNATIONAL UNIT, QD
     Route: 058
     Dates: start: 20220509
  9. BACTRIM [Concomitant]
     Active Substance: SULFAMETHOXAZOLE\TRIMETHOPRIM
     Indication: Infection prophylaxis
     Dosage: UNK UNK, QD
     Route: 048
     Dates: start: 20220712
  10. ATOVAQUONE;PROGUANIL [Concomitant]
     Indication: Malaria prophylaxis
     Dosage: UNK UNK, QD
     Route: 048
     Dates: start: 20220714, end: 20230321
  11. TESTOSTERONE DECANOATE [Concomitant]
     Active Substance: TESTOSTERONE DECANOATE
     Indication: Erectile dysfunction
     Dosage: 1000 MILLIGRAM, Q3MONTHS
     Route: 030
     Dates: start: 20230120
  12. CHLORAMPHENICOL [Concomitant]
     Active Substance: CHLORAMPHENICOL
     Indication: Eye infection
     Dosage: 1 GTT DROPS
     Route: 047
     Dates: start: 20230228, end: 20230304

REACTIONS (1)
  - Staphylococcal skin infection [Recovered/Resolved]

NARRATIVE: CASE EVENT DATE: 20230321
